FAERS Safety Report 12217081 (Version 1)
Quarter: 2016Q1

REPORT INFORMATION
  Report Type: Spontaneous
  Country: BR (occurrence: BR)
  Receive Date: 20160329
  Receipt Date: 20160329
  Transmission Date: 20160526
  Serious: Yes (Congenital Anomaly)
  Sender: FDA-Public Use
  Company Number: BR-WATSON-2016-06569

PATIENT

DRUGS (1)
  1. DICLOFENAC POTASSIUM (UNKNOWN) [Suspect]
     Active Substance: DICLOFENAC POTASSIUM
     Indication: PHARYNGITIS
     Dosage: 150 MG, DAILY
     Route: 064

REACTIONS (2)
  - Ductus arteriosus stenosis foetal [Recovered/Resolved]
  - Foetal exposure during pregnancy [Unknown]
